FAERS Safety Report 18952130 (Version 4)
Quarter: 2021Q2

REPORT INFORMATION
  Report Type: Spontaneous
  Country: DE (occurrence: DE)
  Receive Date: 20210301
  Receipt Date: 20210409
  Transmission Date: 20210717
  Serious: Yes (Hospitalization, Other)
  Sender: FDA-Public Use
  Company Number: DE-AUROBINDO-AUR-APL-2021-008200

PATIENT
  Age: 67 Year
  Sex: Male

DRUGS (9)
  1. PANTOPRAZOLE [Suspect]
     Active Substance: PANTOPRAZOLE
     Indication: ACUTE RESPIRATORY DISTRESS SYNDROME
     Dosage: 40 MILLIGRAM, ONCE A DAY
     Route: 042
  2. ENOXAPARIN [Suspect]
     Active Substance: ENOXAPARIN
     Indication: ACUTE RESPIRATORY DISTRESS SYNDROME
     Dosage: 40 MILLIGRAM, ONCE A DAY
     Route: 058
  3. MACROGOL [Suspect]
     Active Substance: POLYETHYLENE GLYCOLS
     Indication: ACUTE RESPIRATORY DISTRESS SYNDROME
     Dosage: 13 GRAM, ONCE A DAY
     Route: 049
  4. PROPOFOL. [Suspect]
     Active Substance: PROPOFOL
     Indication: ACUTE RESPIRATORY DISTRESS SYNDROME
     Dosage: 60?240 MILLIGRAM, EVERY HOUR
     Route: 042
     Dates: start: 20200319, end: 20200404
  5. REMDESIVIR. [Suspect]
     Active Substance: REMDESIVIR
     Indication: ACUTE RESPIRATORY DISTRESS SYNDROME
     Dosage: 200 MILLIGRAM, ONCE A DAY
     Route: 042
     Dates: start: 20200326, end: 20200326
  6. SUFENTANIL [Suspect]
     Active Substance: SUFENTANIL
     Indication: ACUTE RESPIRATORY DISTRESS SYNDROME
     Dosage: 50100 MICROGRAM, EVERY HOUR
     Route: 042
     Dates: start: 20200319
  7. METOCLOPRAMIDE. [Suspect]
     Active Substance: METOCLOPRAMIDE
     Indication: ACUTE RESPIRATORY DISTRESS SYNDROME
     Dosage: 10 MILLIGRAM, ONCE A DAY
     Route: 042
     Dates: end: 20200417
  8. REMDESIVIR. [Suspect]
     Active Substance: REMDESIVIR
     Indication: COVID-19
     Dosage: 100 MILLIGRAM, ONCE A DAY
     Route: 042
     Dates: start: 20200327, end: 20200329
  9. NOREPINEPHRINE. [Suspect]
     Active Substance: NOREPINEPHRINE
     Indication: ACUTE RESPIRATORY DISTRESS SYNDROME
     Dosage: 50300 MICROGRAM, EVERY HOUR
     Route: 042
     Dates: start: 20200421, end: 20200421

REACTIONS (3)
  - Blister [Recovered/Resolved]
  - Symmetrical drug-related intertriginous and flexural exanthema [Recovered/Resolved]
  - Rash maculo-papular [Recovered/Resolved]

NARRATIVE: CASE EVENT DATE: 20200330
